FAERS Safety Report 7787529-3 (Version None)
Quarter: 2011Q3

REPORT INFORMATION
  Report Type: 
  Country: None (occurrence: None)
  Receive Date: 20110929
  Receipt Date: 20110920
  Transmission Date: 20111222
  Serious: No
  Sender: FDA-Public Use
  Company Number: US-B.I. PHARMACEUTICALS,INC./RIDGEFIELD-2011-BP-22638BP

PATIENT
  Sex: Female

DRUGS (4)
  1. AGGRENOX [Suspect]
     Indication: CEREBROVASCULAR ACCIDENT PROPHYLAXIS
     Route: 048
     Dates: start: 20110101
  2. MEDICATION FOR BLOOD PRESSURE [Concomitant]
     Indication: HYPERTENSION
     Route: 048
  3. MEDICATION FOR DIABETES [Concomitant]
     Indication: DIABETES MELLITUS
     Route: 048
  4. MEDICATION FOR CHOLESTEROL [Concomitant]
     Indication: BLOOD CHOLESTEROL INCREASED
     Route: 048

REACTIONS (2)
  - TINNITUS [None]
  - PHOTOPSIA [None]
